FAERS Safety Report 13881525 (Version 1)
Quarter: 2017Q3

REPORT INFORMATION
  Report Type: Spontaneous
  Country: US (occurrence: None)
  Receive Date: 20170815
  Receipt Date: 20170815
  Transmission Date: 20171127
  Serious: Yes (Hospitalization)
  Sender: FDA-Public Use
  Company Number: None

PATIENT
  Age: 51 Year
  Sex: Male

DRUGS (1)
  1. CLOZAPINE (MYLAN) [Suspect]
     Active Substance: CLOZAPINE
     Indication: SCHIZOPHRENIA
     Route: 048
     Dates: start: 20170612, end: 20170706

REACTIONS (3)
  - Thrombocytopenia [None]
  - Agranulocytosis [None]
  - Febrile neutropenia [None]

NARRATIVE: CASE EVENT DATE: 20170720
